FAERS Safety Report 5511997-0 (Version None)
Quarter: 2007Q4

REPORT INFORMATION
  Report Type: 
  Country: None (occurrence: None)
  Receive Date: 20071109
  Receipt Date: 20071106
  Transmission Date: 20080405
  Serious: Yes (Other)
  Sender: FDA-Public Use
  Company Number: US-MERCK-0710USA02390

PATIENT
  Age: 75 Year
  Sex: Female

DRUGS (8)
  1. COSOPT [Suspect]
     Indication: GLAUCOMA
     Route: 047
     Dates: start: 20050909, end: 20050901
  2. ALPHAGAN P [Concomitant]
     Route: 065
  3. PLAVIX [Concomitant]
     Route: 065
  4. TOPROL-XL [Concomitant]
     Route: 065
  5. DIOVAN [Concomitant]
     Route: 065
  6. METHAZOLAMIDE [Suspect]
     Indication: INTRAOCULAR PRESSURE TEST
     Route: 065
     Dates: start: 20050601, end: 20050906
  7. HYTRIN [Concomitant]
     Route: 065
  8. PRAVASTATIN SODIUM [Concomitant]
     Route: 065

REACTIONS (1)
  - PANCYTOPENIA [None]
